FAERS Safety Report 7459892-4 (Version None)
Quarter: 2011Q2

REPORT INFORMATION
  Report Type: 
  Country: None (occurrence: None)
  Receive Date: 20110505
  Receipt Date: 20110403
  Transmission Date: 20111010
  Serious: Yes (Hospitalization)
  Sender: FDA-Public Use
  Company Number: US-BAYER-201020259NA

PATIENT
  Age: 32 Year
  Sex: Female
  Weight: 104.5 kg

DRUGS (18)
  1. KETOROLAC TROMETHAMINE [Concomitant]
     Dosage: 15 MG, QID
     Route: 042
     Dates: start: 20080416
  2. NAPROXEN [Concomitant]
     Dosage: 500 MG, UNK
     Route: 048
     Dates: start: 20071116
  3. ACETAMINOPHEN W/ CODEINE [Concomitant]
     Dosage: UNK UNK, PRN
     Route: 048
     Dates: start: 20080415
  4. LOVENOX [Concomitant]
     Dosage: 100 MG, UNK
     Route: 058
     Dates: start: 20080422
  5. RANITIDINE [Concomitant]
     Dosage: 50 MG, TID
     Route: 042
     Dates: start: 20080416
  6. DOLASETRON MESYLATE [Concomitant]
     Dosage: 12.5 UNK, UNK
     Dates: start: 20080422
  7. ZOFRAN [Concomitant]
     Dosage: 4 MG, PRN
     Route: 042
     Dates: start: 20080422
  8. FLONASE [Concomitant]
     Route: 045
  9. ALLEGRA [Concomitant]
  10. PROCHLORPERAZINE TAB [Concomitant]
     Dosage: 10 MG, PRN
     Route: 048
     Dates: start: 20080415
  11. METOCLOPRAMIDE [Concomitant]
     Dosage: 10 MG, QID
     Route: 042
     Dates: start: 20080416
  12. HEPARIN SODIUM [Concomitant]
     Dosage: 5000 IU, BID
     Route: 058
     Dates: start: 20080416
  13. CEFAZOLIN [Concomitant]
     Dosage: UNK
     Route: 042
     Dates: start: 20080416
  14. UNKNOWN [Concomitant]
     Dosage: UNK
     Route: 042
     Dates: start: 20080422
  15. FAMOTIDINE [Concomitant]
     Dosage: 20 MG, BID
     Route: 048
     Dates: start: 20080415
  16. YAZ [Suspect]
     Dosage: AS USED DOSE: UNK
     Route: 048
     Dates: start: 20060101, end: 20080401
  17. DICLOFENAC SODIUM [Concomitant]
     Dosage: 75 MG, BID
     Route: 048
     Dates: start: 20080108
  18. FENTANYL [Concomitant]
     Dosage: UNK
     Route: 042
     Dates: start: 20080416

REACTIONS (2)
  - SPLENIC VEIN THROMBOSIS [None]
  - PORTAL VEIN THROMBOSIS [None]
